FAERS Safety Report 14218030 (Version 2)
Quarter: 2017Q4

REPORT INFORMATION
  Report Type: Spontaneous
  Country: CN (occurrence: CN)
  Receive Date: 20171123
  Receipt Date: 20171211
  Transmission Date: 20180321
  Serious: Yes (Other)
  Sender: FDA-Public Use
  Company Number: CN-ROCHE-2029109

PATIENT
  Sex: Male

DRUGS (4)
  1. OXALIPLATIN. [Concomitant]
     Active Substance: OXALIPLATIN
     Indication: GASTROINTESTINAL CARCINOMA
     Route: 065
     Dates: start: 201706
  2. AVASTIN [Suspect]
     Active Substance: BEVACIZUMAB
     Indication: GASTROINTESTINAL CARCINOMA
     Dosage: 100MG/4ML
     Route: 041
     Dates: start: 201706
  3. TETRAHYDROFOLIC ACID [Concomitant]
     Indication: GASTROINTESTINAL CARCINOMA
     Route: 065
     Dates: start: 201706
  4. 5-FLUOROURACIL [Concomitant]
     Active Substance: FLUOROURACIL
     Indication: GASTROINTESTINAL CARCINOMA
     Route: 065
     Dates: start: 201706

REACTIONS (2)
  - Varices oesophageal [Recovered/Resolved]
  - Portal hypertension [Recovered/Resolved]

NARRATIVE: CASE EVENT DATE: 20171120
